FAERS Safety Report 25104310 (Version 1)
Quarter: 2025Q1

REPORT INFORMATION
  Report Type: Spontaneous
  Country: US (occurrence: US)
  Receive Date: 20250321
  Receipt Date: 20250321
  Transmission Date: 20250409
  Serious: No
  Sender: TEVA
  Company Number: US-TEVA-VS-3308109

PATIENT

DRUGS (1)
  1. ESTRADIOL\NORETHINDRONE ACETATE [Suspect]
     Active Substance: ESTRADIOL\NORETHINDRONE ACETATE
     Indication: Product used for unknown indication
     Route: 065

REACTIONS (2)
  - Hyperhidrosis [Unknown]
  - Breast tenderness [Unknown]
